FAERS Safety Report 7294085-5 (Version None)
Quarter: 2011Q1

REPORT INFORMATION
  Report Type: 
  Country: None (occurrence: None)
  Receive Date: 20110203
  Receipt Date: 20110118
  Transmission Date: 20110831
  Serious: Yes (Hospitalization)
  Sender: FDA-Public Use
  Company Number: B0696685A

PATIENT
  Age: 40 Year
  Sex: Female

DRUGS (3)
  1. LAMOTRIGINE [Suspect]
     Indication: PRODUCT USED FOR UNKNOWN INDICATION
     Dosage: 200 MG
  2. DEXAMETHASONE [Concomitant]
  3. FAMOTIDINE [Concomitant]

REACTIONS (9)
  - AGITATION [None]
  - ENCEPHALOPATHY [None]
  - MUTISM [None]
  - OVERDOSE [None]
  - CATATONIA [None]
  - DELIRIUM [None]
  - COGNITIVE DISORDER [None]
  - HYPERREFLEXIA [None]
  - TREMOR [None]
